FAERS Safety Report 20135123 (Version 1)
Quarter: 2021Q4

REPORT INFORMATION
  Report Type: Spontaneous
  Country: US (occurrence: None)
  Receive Date: 20211201
  Receipt Date: 20211201
  Transmission Date: 20220303
  Serious: No
  Sender: FDA-Public Use
  Company Number: None

PATIENT
  Age: 72 Year
  Sex: Female
  Weight: 53.5 kg

DRUGS (1)
  1. ASPIRIN [Suspect]
     Active Substance: ASPIRIN

REACTIONS (4)
  - Intraductal proliferative breast lesion [None]
  - Hormone receptor positive breast cancer [None]
  - Breast necrosis [None]
  - Mastectomy [None]

NARRATIVE: CASE EVENT DATE: 20210621
